FAERS Safety Report 5959658-8 (Version None)
Quarter: 2008Q4

REPORT INFORMATION
  Report Type: 
  Country: None (occurrence: None)
  Receive Date: 20081120
  Receipt Date: 20081105
  Transmission Date: 20090506
  Serious: Yes (Other)
  Sender: FDA-Public Use
  Company Number: GXKR2006GB07710

PATIENT
  Age: 60 Year
  Sex: Female

DRUGS (3)
  1. ANASTROZOLE (NGX) [Suspect]
  2. LETROZOLE [Suspect]
     Dosage: 2.5 MG, QD
  3. AMITRIPTYLINE HCL [Concomitant]
     Indication: URINARY TRACT DISORDER
     Dosage: 10 MG

REACTIONS (10)
  - AFFECT LABILITY [None]
  - ASTHENIA [None]
  - BIPOLAR DISORDER [None]
  - DEPRESSION [None]
  - DISTURBANCE IN ATTENTION [None]
  - INSOMNIA [None]
  - PAIN IN EXTREMITY [None]
  - PSYCHOMOTOR HYPERACTIVITY [None]
  - SUICIDAL IDEATION [None]
  - TREMOR [None]
